FAERS Safety Report 22102653 (Version 1)
Quarter: 2023Q1

REPORT INFORMATION
  Report Type: Spontaneous
  Country: JP (occurrence: JP)
  Receive Date: 20230316
  Receipt Date: 20230316
  Transmission Date: 20230418
  Serious: Yes (Other)
  Sender: FDA-Public Use
  Company Number: JP-PFIZER INC-PV202300048659

PATIENT
  Age: 5 Decade
  Sex: Female

DRUGS (1)
  1. LORAZEPAM [Suspect]
     Active Substance: LORAZEPAM
     Indication: Prophylaxis against alcoholic withdrawal syndrome
     Dosage: UNK

REACTIONS (2)
  - Hepatitis [Unknown]
  - Off label use [Unknown]
